FAERS Safety Report 4423996-0 (Version None)
Quarter: 2004Q3

REPORT INFORMATION
  Report Type: 
  Country: None (occurrence: None)
  Receive Date: 20040806
  Receipt Date: 20040720
  Transmission Date: 20050211
  Serious: Yes (Hospitalization)
  Sender: FDA-Public Use
  Company Number: JP_040703904

PATIENT
  Age: 77 Year
  Sex: Male
  Weight: 40 kg

DRUGS (8)
  1. GEMZAR [Suspect]
     Indication: BILE DUCT CANCER
     Dosage: 1000 MG OTHER
     Dates: start: 20040705, end: 20040716
  2. URSO (UROSDEOXYCHOLIC ACID) [Concomitant]
  3. GLYCYRON [Concomitant]
  4. ADALAT [Concomitant]
  5. LAC B (LACTOBACILLUS BIFIDUS, LYOPHILIZED) [Concomitant]
  6. FAMOTIDINE [Concomitant]
  7. AMOBAN (ZOPICLONE) [Concomitant]
  8. LAC B (LACTOBACILLUS BIFIDUS, LYOPHILIZED) [Concomitant]

REACTIONS (5)
  - DRUG INEFFECTIVE [None]
  - ERYTHEMA [None]
  - FEELING HOT [None]
  - OEDEMA PERIPHERAL [None]
  - PYREXIA [None]
